FAERS Safety Report 24890475 (Version 1)
Quarter: 2025Q1

REPORT INFORMATION
  Report Type: Spontaneous
  Country: FR (occurrence: FR)
  Receive Date: 20250127
  Receipt Date: 20250127
  Transmission Date: 20250409
  Serious: Yes (Hospitalization)
  Sender: ELI LILLY AND COMPANY
  Company Number: None

PATIENT
  Age: 66 Year
  Sex: Female

DRUGS (2)
  1. ABEMACICLIB [Suspect]
     Active Substance: ABEMACICLIB
     Indication: Breast cancer metastatic
     Dosage: 150 MG, BID
     Route: 048
     Dates: end: 20241204
  2. LINEZOLID [Concomitant]
     Active Substance: LINEZOLID
     Indication: Osteonecrosis of jaw
     Dosage: 600 MG, BID
     Route: 048
     Dates: start: 20241119

REACTIONS (3)
  - Hepatic cytolysis [Recovered/Resolved with Sequelae]
  - Anaemia [Recovered/Resolved]
  - Thrombocytopenia [Recovered/Resolved]

NARRATIVE: CASE EVENT DATE: 20241125
